FAERS Safety Report 8830121 (Version 1)
Quarter: 2012Q4

REPORT INFORMATION
  Report Type: Spontaneous
  Country: US (occurrence: None)
  Receive Date: 20121005
  Receipt Date: 20121005
  Transmission Date: 20130627
  Serious: Yes (Other)
  Sender: FDA-Public Use
  Company Number: None

PATIENT
  Age: 64 Year
  Sex: Male
  Weight: 87.09 kg

DRUGS (2)
  1. PRADAXA [Suspect]
     Indication: ATRIAL FLUTTER
     Route: 048
     Dates: start: 20120908, end: 20120910
  2. PRADAXA [Suspect]
     Indication: IMPLANTABLE CARDIOVERTER DEFIBRILLATOR INSERTION
     Route: 048
     Dates: start: 20120908, end: 20120910

REACTIONS (4)
  - Abdominal discomfort [None]
  - Faeces discoloured [None]
  - Dysuria [None]
  - Haematuria [None]
